FAERS Safety Report 16206714 (Version 1)
Quarter: 2019Q2

REPORT INFORMATION
  Report Type: Spontaneous
  Country: US (occurrence: US)
  Receive Date: 20190312
  Receipt Date: 20190312
  Transmission Date: 20190711
  Serious: Yes (Life-Threatening, Hospitalization, Disabling, Other)
  Sender: FDA-Public Use
  Company Number: None

PATIENT
  Age: 5 Year
  Sex: Male
  Weight: 19 kg

DRUGS (37)
  1. ACETAZOLAMIDE. [Concomitant]
     Active Substance: ACETAZOLAMIDE
  2. LIPOSOME [Concomitant]
     Active Substance: PACLITAXEL
  3. MICAFUNGIN. [Concomitant]
     Active Substance: MICAFUNGIN SODIUM
  4. PROCARDIA [Concomitant]
     Active Substance: NIFEDIPINE
  5. POTASSIUM CHLORIDE. [Concomitant]
     Active Substance: POTASSIUM CHLORIDE
  6. POSACONAZOLE [Concomitant]
     Active Substance: POSACONAZOLE
  7. AMPHOTERICIN [Concomitant]
     Active Substance: AMPHOTERICIN B
  8. METHADONE [Concomitant]
     Active Substance: METHADONE HYDROCHLORIDE
  9. DIPHENHYDRAMINE. [Concomitant]
     Active Substance: DIPHENHYDRAMINE
  10. HYDRALAZINE [Concomitant]
     Active Substance: HYDRALAZINE HYDROCHLORIDE
  11. MORPHINE [Concomitant]
     Active Substance: MORPHINE
  12. NEURONTIN [Concomitant]
     Active Substance: GABAPENTIN
  13. VORICONAZOLE. [Concomitant]
     Active Substance: VORICONAZOLE
  14. CEFTAROLINE [Concomitant]
     Active Substance: CEFTAROLINE
  15. DEXMEDETOMIDINE. [Concomitant]
     Active Substance: DEXMEDETOMIDINE
  16. GABAPENTIN. [Concomitant]
     Active Substance: GABAPENTIN
  17. MEROPENEM. [Concomitant]
     Active Substance: MEROPENEM
  18. FENTANYL. [Concomitant]
     Active Substance: FENTANYL
  19. KETAMINE [Concomitant]
     Active Substance: KETAMINE
  20. MILRINONE [Concomitant]
     Active Substance: MILRINONE
  21. ACYCLOVIR. [Concomitant]
     Active Substance: ACYCLOVIR
  22. FUROSEMIDE. [Concomitant]
     Active Substance: FUROSEMIDE
  23. ZYPREXA [Concomitant]
     Active Substance: OLANZAPINE
  24. PANTOPRAZOLE [Concomitant]
     Active Substance: PANTOPRAZOLE
  25. MARQIBO [Suspect]
     Active Substance: VINCRISTINE SULFATE
     Indication: ACUTE LYMPHOCYTIC LEUKAEMIA
     Route: 042
     Dates: start: 20190122, end: 20190228
  26. ALBUMIN [Concomitant]
     Active Substance: ALBUMIN HUMAN
  27. APRESOLINE HYDROCHLORIDE [Concomitant]
     Active Substance: HYDRALAZINE HYDROCHLORIDE
  28. NICARDIPINE [Concomitant]
     Active Substance: NICARDIPINE
  29. VECURONIUM [Concomitant]
     Active Substance: VECURONIUM BROMIDE
  30. KEPPRA [Concomitant]
     Active Substance: LEVETIRACETAM
  31. MITOXANTRONE - 10MG/M2/DAY [Suspect]
     Active Substance: MITOXANTRONE HYDROCHLORIDE
     Indication: ACUTE LYMPHOCYTIC LEUKAEMIA
     Route: 042
     Dates: start: 20190122, end: 20190219
  32. DEXAMETHASONE. [Suspect]
     Active Substance: DEXAMETHASONE
     Indication: ACUTE LYMPHOCYTIC LEUKAEMIA
     Route: 048
     Dates: start: 20190122, end: 20190228
  33. ACETAMINOPHEN. [Concomitant]
     Active Substance: ACETAMINOPHEN
  34. ATIVAN [Concomitant]
     Active Substance: LORAZEPAM
  35. LEUCOVORIN. [Concomitant]
     Active Substance: LEUCOVORIN
  36. METHYLPREDNISOLONE. [Concomitant]
     Active Substance: METHYLPREDNISOLONE
  37. RISPERDAL [Concomitant]
     Active Substance: RISPERIDONE

REACTIONS (15)
  - Blood culture positive [None]
  - Pancreatitis [None]
  - Cerebral artery stenosis [None]
  - Hypertension [None]
  - Hydrocephalus [None]
  - Abdominal distension [None]
  - Nervous system disorder [None]
  - Cerebral hypoperfusion [None]
  - Leukaemia recurrent [None]
  - Therapy non-responder [None]
  - Post procedural complication [None]
  - Delayed recovery from anaesthesia [None]
  - Ejection fraction decreased [None]
  - Clinical trial participant [None]
  - Febrile neutropenia [None]

NARRATIVE: CASE EVENT DATE: 20190305
